FAERS Safety Report 6787395-9 (Version None)
Quarter: 2010Q2

REPORT INFORMATION
  Report Type: 
  Country: None (occurrence: None)
  Receive Date: 20100623
  Receipt Date: 20070417
  Transmission Date: 20101027
  Serious: Yes (Other)
  Sender: FDA-Public Use
  Company Number: US-PFIZER INC-2007030603

PATIENT
  Sex: Female
  Weight: 95 kg

DRUGS (2)
  1. DEPO-PROVERA SUSPENSION/INJ [Suspect]
     Indication: CONTRACEPTION
     Dosage: EVERY 12 WEEKS
     Route: 030
  2. CALCIUM WITH VITAMIN D [Concomitant]

REACTIONS (1)
  - OSTEOPENIA [None]
